FAERS Safety Report 25126060 (Version 1)
Quarter: 2025Q1

REPORT INFORMATION
  Report Type: Spontaneous
  Country: US (occurrence: US)
  Receive Date: 20250326
  Receipt Date: 20250326
  Transmission Date: 20250408
  Serious: No
  Sender: JOHNSON AND JOHNSON
  Company Number: US-JNJFOC-20250246943

PATIENT
  Sex: Female

DRUGS (16)
  1. XARELTO [Suspect]
     Active Substance: RIVAROXABAN
     Indication: Product used for unknown indication
     Route: 048
  2. AMIODARONE [Concomitant]
     Active Substance: AMIODARONE
  3. DILTIAZEM [Concomitant]
     Active Substance: DILTIAZEM
  4. AMLODIPINE [Concomitant]
     Active Substance: AMLODIPINE BESYLATE
  5. CETIRIZINE HYDROCHLORIDE [Concomitant]
     Active Substance: CETIRIZINE HYDROCHLORIDE
  6. PANTOPRAZOLE [Concomitant]
     Active Substance: PANTOPRAZOLE
  7. SPIRIVA [Concomitant]
     Active Substance: TIOTROPIUM BROMIDE MONOHYDRATE
  8. RESTASIS [Concomitant]
     Active Substance: CYCLOSPORINE
  9. VALSARTAN [Concomitant]
     Active Substance: VALSARTAN
  10. WARFARIN [Concomitant]
     Active Substance: WARFARIN
  11. CALCIUM MAGNESIUM [CALCIUM CITRATE;MAGNESIUM CITRATE] [Concomitant]
  12. CULTURELLE [Concomitant]
     Active Substance: LACTOBACILLUS RHAMNOSUS
  13. VITAMIN C [Concomitant]
     Active Substance: ASCORBIC ACID
  14. VITAMIN D3 [Concomitant]
     Active Substance: CHOLECALCIFEROL
  15. DIETARY SUPPLEMENT [Concomitant]
     Active Substance: DIETARY SUPPLEMENT
  16. LUTEIN ZEAXANTHIN [Concomitant]

REACTIONS (1)
  - Dyspnoea [Unknown]
